FAERS Safety Report 17736837 (Version 1)
Quarter: 2020Q2

REPORT INFORMATION
  Report Type: Spontaneous
  Country: ES (occurrence: ES)
  Receive Date: 20200502
  Receipt Date: 20200502
  Transmission Date: 20200714
  Serious: Yes (Other)
  Sender: FDA-Public Use
  Company Number: ES-TEVA-2020-ES-1228515

PATIENT
  Age: 67 Year
  Sex: Male

DRUGS (3)
  1. CEFTRIAXONA (501A) [Suspect]
     Active Substance: CEFTRIAXONE
     Dosage: 1 GRAM
     Route: 042
     Dates: start: 20200324, end: 20200327
  2. AZITROMICINA (7019A) [Suspect]
     Active Substance: AZITHROMYCIN
     Indication: N-TELOPEPTIDE URINE ABNORMAL
     Dosage: 500 MG
     Route: 048
     Dates: start: 20200324, end: 20200327
  3. KALETRA [Suspect]
     Active Substance: LOPINAVIR\RITONAVIR
     Indication: CORONAVIRUS INFECTION
     Dosage: 2 DOSAGE FORMS
     Route: 048
     Dates: start: 20200325, end: 20200331

REACTIONS (1)
  - Hyperbilirubinaemia [Recovered/Resolved]

NARRATIVE: CASE EVENT DATE: 20200401
